FAERS Safety Report 18578640 (Version 3)
Quarter: 2020Q4

REPORT INFORMATION
  Report Type: Spontaneous
  Country: US (occurrence: US)
  Receive Date: 20201204
  Receipt Date: 20201221
  Transmission Date: 20210114
  Serious: Yes (Hospitalization, Other)
  Sender: FDA-Public Use
  Company Number: US-EUSA PHARMA (UK) LIMITED-2020US000273

PATIENT

DRUGS (8)
  1. BENADRYL [Concomitant]
     Active Substance: DIPHENHYDRAMINE HYDROCHLORIDE
     Indication: PREMEDICATION
     Dosage: UNK
     Route: 065
     Dates: start: 20201202
  2. SYLVANT [Suspect]
     Active Substance: SILTUXIMAB
     Dosage: UNK
     Route: 065
     Dates: start: 20201209
  3. SYLVANT [Suspect]
     Active Substance: SILTUXIMAB
     Dosage: UNK
     Route: 065
     Dates: start: 20201202
  4. BENADRYL [Concomitant]
     Active Substance: DIPHENHYDRAMINE HYDROCHLORIDE
     Dosage: UNK
     Route: 065
     Dates: start: 20201209
  5. PEPCID AC [Concomitant]
     Active Substance: FAMOTIDINE
     Indication: PREMEDICATION
     Dosage: UNK
     Route: 065
     Dates: start: 20201209
  6. SYLVANT [Suspect]
     Active Substance: SILTUXIMAB
     Indication: CASTLEMAN^S DISEASE
     Dosage: ONCE A WEEK FOR 4 WEEKS
     Route: 065
  7. HYDROCORTISON ACETATE [Concomitant]
     Active Substance: HYDROCORTISONE ACETATE
     Indication: PREMEDICATION
     Dosage: UNK
     Route: 065
     Dates: start: 20201209
  8. SINGULAIR [Concomitant]
     Active Substance: MONTELUKAST SODIUM
     Indication: PREMEDICATION
     Dosage: UNK
     Route: 065
     Dates: start: 20201209

REACTIONS (8)
  - Tachycardia [Unknown]
  - Vomiting [Unknown]
  - Off label use [Unknown]
  - Hyperhidrosis [Unknown]
  - Injection site reaction [Recovered/Resolved]
  - Thrombocytopenia [Unknown]
  - Infusion related reaction [Unknown]
  - Flushing [Unknown]

NARRATIVE: CASE EVENT DATE: 20201124
